FAERS Safety Report 17020689 (Version 10)
Quarter: 2025Q3

REPORT INFORMATION
  Report Type: Report from Study
  Country: EU (occurrence: EU)
  Receive Date: 20191112
  Receipt Date: 20250804
  Transmission Date: 20251021
  Serious: Yes (Death, Hospitalization, Other)
  Sender: ALEXION PHARMACEUTICALS
  Company Number: 2019SF40633

PATIENT
  Sex: Female
  Weight: 81 kg

DRUGS (74)
  1. FULVESTRANT [Suspect]
     Active Substance: FULVESTRANT
     Indication: Breast cancer metastatic
     Dates: start: 20190514, end: 20190903
  2. RIBOCICLIB [Suspect]
     Active Substance: RIBOCICLIB
     Indication: Breast cancer metastatic
     Dosage: 400 MG, QD (21 DAYS INTAKE, 7 DAYS PAUSE)
     Dates: start: 20190515, end: 20190611
  3. RIBOCICLIB [Suspect]
     Active Substance: RIBOCICLIB
     Dosage: 200 MG, QD (21 DAYS INTAKE, 7 DAYS PAUSE)
     Dates: start: 20190618, end: 20190905
  4. LEVOTHYROXINE [Concomitant]
     Active Substance: LEVOTHYROXINE
     Indication: Thyroidectomy
     Dosage: 100 UG, QD
     Dates: end: 201910
  5. ATORVASTATIN [Concomitant]
     Active Substance: ATORVASTATIN
     Indication: Product used for unknown indication
     Dosage: 1 MG, QD
     Route: 065
  6. ANASTROZOLE [Concomitant]
     Active Substance: ANASTROZOLE
     Indication: Product used for unknown indication
     Dosage: 1 MG, QD
     Route: 065
  7. PANTOPRAZOLE [Concomitant]
     Active Substance: PANTOPRAZOLE
     Indication: Product used for unknown indication
     Dosage: 40 MG, QD
     Route: 065
  8. LEVEMIR [Concomitant]
     Active Substance: INSULIN DETEMIR
     Indication: Product used for unknown indication
     Dosage: 14 MG, QD
     Route: 065
  9. HUMALOG [Concomitant]
     Active Substance: INSULIN LISPRO
     Indication: Product used for unknown indication
     Route: 065
  10. HUMALOG [Concomitant]
     Active Substance: INSULIN LISPRO
     Route: 065
  11. HUMALOG [Concomitant]
     Active Substance: INSULIN LISPRO
     Route: 065
  12. HUMALOG [Concomitant]
     Active Substance: INSULIN LISPRO
     Route: 065
  13. HUMALOG [Concomitant]
     Active Substance: INSULIN LISPRO
     Route: 065
  14. HUMALOG [Concomitant]
     Active Substance: INSULIN LISPRO
     Route: 065
  15. HUMALOG [Concomitant]
     Active Substance: INSULIN LISPRO
     Route: 065
  16. HUMALOG [Concomitant]
     Active Substance: INSULIN LISPRO
     Route: 065
  17. HUMALOG [Concomitant]
     Active Substance: INSULIN LISPRO
     Route: 065
  18. HUMALOG [Concomitant]
     Active Substance: INSULIN LISPRO
     Route: 065
  19. HUMALOG [Concomitant]
     Active Substance: INSULIN LISPRO
     Route: 065
  20. HUMALOG [Concomitant]
     Active Substance: INSULIN LISPRO
     Route: 065
  21. CLOPIDOGREL [Concomitant]
     Active Substance: CLOPIDOGREL BISULFATE
     Indication: Product used for unknown indication
     Dosage: 300 MILLIGRAM, QD
     Route: 065
  22. CLOPIDOGREL [Concomitant]
     Active Substance: CLOPIDOGREL BISULFATE
     Route: 065
  23. CLOPIDOGREL [Concomitant]
     Active Substance: CLOPIDOGREL BISULFATE
     Route: 065
  24. CLOPIDOGREL [Concomitant]
     Active Substance: CLOPIDOGREL BISULFATE
     Route: 065
  25. CLOPIDOGREL [Concomitant]
     Active Substance: CLOPIDOGREL BISULFATE
     Route: 065
  26. CLOPIDOGREL [Concomitant]
     Active Substance: CLOPIDOGREL BISULFATE
     Route: 065
  27. CLOPIDOGREL [Concomitant]
     Active Substance: CLOPIDOGREL BISULFATE
     Route: 065
  28. CLOPIDOGREL [Concomitant]
     Active Substance: CLOPIDOGREL BISULFATE
     Route: 065
  29. CLOPIDOGREL [Concomitant]
     Active Substance: CLOPIDOGREL BISULFATE
     Route: 065
  30. CLOPIDOGREL [Concomitant]
     Active Substance: CLOPIDOGREL BISULFATE
     Route: 065
  31. CLOPIDOGREL [Concomitant]
     Active Substance: CLOPIDOGREL BISULFATE
     Route: 065
  32. CLOPIDOGREL [Concomitant]
     Active Substance: CLOPIDOGREL BISULFATE
     Route: 065
  33. CANDESARTAN [Concomitant]
     Active Substance: CANDESARTAN
     Indication: Product used for unknown indication
     Route: 065
  34. CANDESARTAN [Concomitant]
     Active Substance: CANDESARTAN
     Route: 065
  35. CANDESARTAN [Concomitant]
     Active Substance: CANDESARTAN
     Route: 065
  36. CANDESARTAN [Concomitant]
     Active Substance: CANDESARTAN
     Route: 065
  37. CANDESARTAN [Concomitant]
     Active Substance: CANDESARTAN
     Route: 065
  38. CANDESARTAN [Concomitant]
     Active Substance: CANDESARTAN
     Route: 065
  39. CANDESARTAN [Concomitant]
     Active Substance: CANDESARTAN
     Route: 065
  40. CANDESARTAN [Concomitant]
     Active Substance: CANDESARTAN
     Route: 065
  41. CANDESARTAN [Concomitant]
     Active Substance: CANDESARTAN
     Route: 065
  42. CANDESARTAN [Concomitant]
     Active Substance: CANDESARTAN
     Route: 065
  43. CANDESARTAN [Concomitant]
     Active Substance: CANDESARTAN
     Route: 065
  44. CANDESARTAN [Concomitant]
     Active Substance: CANDESARTAN
     Route: 065
  45. TORSEMIDE [Concomitant]
     Active Substance: TORSEMIDE
     Indication: Product used for unknown indication
     Route: 065
  46. TORSEMIDE [Concomitant]
     Active Substance: TORSEMIDE
     Route: 065
  47. TORSEMIDE [Concomitant]
     Active Substance: TORSEMIDE
     Route: 065
  48. TORSEMIDE [Concomitant]
     Active Substance: TORSEMIDE
     Route: 065
  49. TORSEMIDE [Concomitant]
     Active Substance: TORSEMIDE
     Route: 065
  50. TORSEMIDE [Concomitant]
     Active Substance: TORSEMIDE
     Route: 065
  51. TORSEMIDE [Concomitant]
     Active Substance: TORSEMIDE
     Route: 065
  52. TORSEMIDE [Concomitant]
     Active Substance: TORSEMIDE
     Route: 065
  53. TORSEMIDE [Concomitant]
     Active Substance: TORSEMIDE
     Route: 065
  54. IRBESARTAN [Concomitant]
     Active Substance: IRBESARTAN
     Indication: Product used for unknown indication
     Dosage: 300 MILLIGRAM, QD
     Route: 065
  55. HYDROCHLOROTHIAZIDE [Concomitant]
     Active Substance: HYDROCHLOROTHIAZIDE
     Indication: Product used for unknown indication
     Dosage: 12.5 MILLIGRAM, QD
  56. ASPIRIN [Concomitant]
     Active Substance: ASPIRIN
     Indication: Product used for unknown indication
     Dosage: 100 MILLIGRAM, QD
     Route: 065
  57. FASLODEX [Concomitant]
     Active Substance: FULVESTRANT
     Indication: Product used for unknown indication
     Route: 065
  58. FASLODEX [Concomitant]
     Active Substance: FULVESTRANT
     Route: 065
  59. FASLODEX [Concomitant]
     Active Substance: FULVESTRANT
     Route: 065
  60. FASLODEX [Concomitant]
     Active Substance: FULVESTRANT
     Route: 065
  61. FASLODEX [Concomitant]
     Active Substance: FULVESTRANT
     Route: 065
  62. FASLODEX [Concomitant]
     Active Substance: FULVESTRANT
     Route: 065
  63. FASLODEX [Concomitant]
     Active Substance: FULVESTRANT
     Route: 065
  64. FASLODEX [Concomitant]
     Active Substance: FULVESTRANT
     Route: 065
  65. FASLODEX [Concomitant]
     Active Substance: FULVESTRANT
     Route: 065
  66. FASLODEX [Concomitant]
     Active Substance: FULVESTRANT
     Route: 065
  67. FASLODEX [Concomitant]
     Active Substance: FULVESTRANT
     Route: 065
  68. ASPIRIN\DIHYDROXYALUMINUM AMINOACETATE ANHYDROUS\MAGNESIUM CARBONATE [Concomitant]
     Active Substance: ASPIRIN\DIHYDROXYALUMINUM AMINOACETATE ANHYDROUS\MAGNESIUM CARBONATE
     Indication: Product used for unknown indication
     Dosage: 100 MG, QD
     Route: 065
  69. Hydrochlorothiazide;Propranolol;Triamterene [Concomitant]
     Indication: Product used for unknown indication
     Dosage: 12.5 MG, QD
     Route: 065
  70. ANASTROZOLE [Concomitant]
     Active Substance: ANASTROZOLE
     Indication: Product used for unknown indication
     Dosage: 1 MG, QD
     Route: 065
  71. Irbesartan;Trichlormethiazide [Concomitant]
     Indication: Product used for unknown indication
     Dosage: 300 MG, QD
     Route: 065
  72. TORSEMIDE [Concomitant]
     Active Substance: TORSEMIDE
     Indication: Product used for unknown indication
     Route: 065
  73. TORSEMIDE [Concomitant]
     Active Substance: TORSEMIDE
     Route: 065
  74. TORSEMIDE [Concomitant]
     Active Substance: TORSEMIDE
     Route: 065

REACTIONS (15)
  - Renal failure [Fatal]
  - General physical health deterioration [Recovered/Resolved]
  - Hyperthyroidism [Recovered/Resolved]
  - Tricuspid valve incompetence [Not Recovered/Not Resolved]
  - Mitral valve stenosis [Not Recovered/Not Resolved]
  - Anaemia [Recovered/Resolved]
  - Cystitis [Recovered/Resolved]
  - Cardiac hypertrophy [Unknown]
  - Microangiopathy [Unknown]
  - Insomnia [Recovered/Resolved]
  - Nausea [Recovered/Resolved]
  - Fatigue [Not Recovered/Not Resolved]
  - Dizziness [Not Recovered/Not Resolved]
  - Off label use [Unknown]
  - Anaemia [Recovered/Resolved]

NARRATIVE: CASE EVENT DATE: 20190618
